FAERS Safety Report 15466160 (Version 2)
Quarter: 2018Q4

REPORT INFORMATION
  Report Type: Report from Study
  Country: ZA (occurrence: ZA)
  Receive Date: 20181004
  Receipt Date: 20181228
  Transmission Date: 20190204
  Serious: Yes (Hospitalization)
  Sender: FDA-Public Use
  Company Number: ZA-SA-2018SA268053

PATIENT
  Age: 60 Year
  Sex: Female

DRUGS (6)
  1. OPTISULIN (INSULIN GLARGINE) [Suspect]
     Active Substance: INSULIN GLARGINE
     Indication: TYPE 2 DIABETES MELLITUS
     Dosage: 24 U, HS
     Dates: start: 20161201
  2. OPTISULIN (INSULIN GLARGINE) [Suspect]
     Active Substance: INSULIN GLARGINE
     Dosage: 25 U, QD
     Dates: start: 20180827
  3. NO STUDY DRUG GIVEN [Suspect]
     Active Substance: UNSPECIFIED INGREDIENT
  4. ELTROXIN [Concomitant]
     Active Substance: LEVOTHYROXINE
     Dosage: 1 UG, QD BEFORE BREAKFAST
     Dates: start: 20180827
  5. DIAGLUCIDE [Concomitant]
     Active Substance: GLICLAZIDE
     Dosage: 160 MG, BID (BEFORE SUPPER ANS BEFORE BREAKFAST)
     Dates: start: 20180827
  6. SERENACE [Concomitant]
     Active Substance: HALOPERIDOL
     Dosage: 2 MG, QD (AFTER SUPPER)
     Dates: start: 20180827

REACTIONS (3)
  - Peripheral swelling [Recovered/Resolved]
  - Blood glucose increased [Recovered/Resolved]
  - Oropharyngeal pain [Recovered/Resolved]

NARRATIVE: CASE EVENT DATE: 20180823
